FAERS Safety Report 11984304 (Version 1)
Quarter: 2016Q1

REPORT INFORMATION
  Report Type: Spontaneous
  Country: US (occurrence: US)
  Receive Date: 20160201
  Receipt Date: 20160201
  Transmission Date: 20160526
  Serious: No
  Sender: FDA-Public Use
  Company Number: US-KADMON PHARMACEUTICALS, LLC-KAD201501-000135

PATIENT
  Age: 53 Year
  Sex: Male

DRUGS (2)
  1. RIBASPHERE RIBAPAK [Suspect]
     Active Substance: RIBAVIRIN
     Indication: HEPATITIS C
     Dosage: TABLET (1000 MG DAILY)
     Route: 048
     Dates: start: 20150101
  2. SOVALDI [Suspect]
     Active Substance: SOFOSBUVIR
     Indication: HEPATITIS C
     Dosage: TABLET
     Route: 048
     Dates: start: 20150101

REACTIONS (9)
  - Erythema [Unknown]
  - Headache [Unknown]
  - Balance disorder [Unknown]
  - Chest discomfort [Unknown]
  - Anxiety [Unknown]
  - Dyspnoea [Unknown]
  - Abnormal behaviour [Unknown]
  - Dizziness [Unknown]
  - Pruritus [Unknown]
